FAERS Safety Report 8377699-0 (Version None)
Quarter: 2012Q2

REPORT INFORMATION
  Report Type: 
  Country: None (occurrence: None)
  Receive Date: 20120522
  Receipt Date: 20120519
  Transmission Date: 20120825
  Serious: Yes (Hospitalization)
  Sender: FDA-Public Use
  Company Number: US-GLAXOSMITHKLINE-A0971368A

PATIENT
  Age: 44 Year
  Sex: Female

DRUGS (5)
  1. BUMEX [Concomitant]
     Dosage: 3MG TWICE PER DAY
  2. FLOLAN [Suspect]
     Indication: PULMONARY ARTERIAL HYPERTENSION
     Dosage: 96NGKM SEE DOSAGE TEXT
     Route: 042
     Dates: start: 20120201
  3. REVATIO [Concomitant]
     Dosage: 20MG THREE TIMES PER DAY
     Route: 048
  4. SPIRONOLACTONE [Concomitant]
     Dosage: 100MG PER DAY
  5. REMODULIN [Concomitant]
     Indication: PRODUCT USED FOR UNKNOWN INDICATION
     Route: 065

REACTIONS (3)
  - FLUID RETENTION [None]
  - SWELLING [None]
  - UPPER GASTROINTESTINAL HAEMORRHAGE [None]
